FAERS Safety Report 4721300-1 (Version None)
Quarter: 2005Q3

REPORT INFORMATION
  Report Type: 
  Country: None (occurrence: None)
  Receive Date: 20050721
  Receipt Date: 20040604
  Transmission Date: 20060218
  Serious: No
  Sender: FDA-Public Use
  Company Number: US-BRISTOL-MYERS SQUIBB COMPANY-12606018

PATIENT
  Age: 71 Year
  Sex: Male
  Weight: 77 kg

DRUGS (11)
  1. COUMADIN [Suspect]
     Indication: ATRIAL FIBRILLATION
     Dosage: 2.5MG QD ALTERNATE WITH 1.25MG QD FOR ABOUT 10 YRS. 6/2/04: STOP X 1 DAY; RESUME AS PRESCRIBED.
     Route: 048
  2. ECOTRIN [Concomitant]
  3. AMIODARONE [Concomitant]
  4. FUROSEMIDE [Concomitant]
  5. LANOXIN [Concomitant]
  6. LOPRESSOR [Concomitant]
  7. NORVASC [Concomitant]
  8. XALATAN [Concomitant]
  9. PREDNISOLONE [Concomitant]
     Dosage: EYE DROPS
     Route: 047
  10. PREDNISOLONE [Concomitant]
     Dosage: EYE DROPS
     Route: 047
  11. SIMVASTATIN [Concomitant]

REACTIONS (1)
  - INTERNATIONAL NORMALISED RATIO INCREASED [None]
